FAERS Safety Report 5215903-8 (Version None)
Quarter: 2007Q1

REPORT INFORMATION
  Report Type: 
  Country: None (occurrence: None)
  Receive Date: 20070123
  Receipt Date: 20070117
  Transmission Date: 20070707
  Serious: Yes (Hospitalization, Other)
  Sender: FDA-Public Use
  Company Number: FR-MERCK-0701FRA00046

PATIENT
  Age: 36 Year
  Sex: Female
  Weight: 73 kg

DRUGS (11)
  1. EMEND [Suspect]
     Indication: PROPHYLAXIS OF NAUSEA AND VOMITING
     Route: 048
     Dates: start: 20061212, end: 20061212
  2. EMEND [Suspect]
     Route: 048
     Dates: start: 20061213, end: 20061214
  3. FLUOROURACIL [Concomitant]
     Indication: BREAST CANCER
     Route: 042
     Dates: start: 20061121, end: 20061121
  4. FLUOROURACIL [Concomitant]
     Route: 042
     Dates: start: 20061212, end: 20061212
  5. EPIRUBICIN HYDROCHLORIDE [Concomitant]
     Indication: BREAST CANCER
     Route: 042
     Dates: start: 20061121, end: 20061121
  6. EPIRUBICIN HYDROCHLORIDE [Concomitant]
     Route: 041
     Dates: start: 20061212, end: 20061212
  7. PRAZEPAM [Concomitant]
     Indication: ANXIETY
     Route: 048
  8. CYCLOPHOSPHAMIDE [Concomitant]
     Indication: BREAST CANCER
     Route: 042
     Dates: start: 20061121, end: 20061121
  9. CYCLOPHOSPHAMIDE [Concomitant]
     Route: 042
     Dates: start: 20061212, end: 20061212
  10. EMEND [Suspect]
     Route: 048
     Dates: start: 20061121, end: 20061121
  11. EMEND [Suspect]
     Route: 048
     Dates: start: 20061122, end: 20061123

REACTIONS (2)
  - DYSURIA [None]
  - URINARY RETENTION [None]
